FAERS Safety Report 17065396 (Version 1)
Quarter: 2019Q4

REPORT INFORMATION
  Report Type: Spontaneous
  Country: US (occurrence: US)
  Receive Date: 20191122
  Receipt Date: 20191122
  Transmission Date: 20200122
  Serious: No
  Sender: FDA-Public Use
  Company Number: US-TEVA-2019-US-1141207

PATIENT
  Age: 77 Year
  Sex: Female
  Weight: 61.22 kg

DRUGS (5)
  1. ATORVASTATIN [Concomitant]
     Active Substance: ATORVASTATIN
     Dates: start: 201806
  2. METOPROLOL. [Concomitant]
     Active Substance: METOPROLOL
     Dates: start: 201806
  3. FEXOFENADINE 180 MG 571 (FEXOFENADINE) TABLET [Suspect]
     Active Substance: FEXOFENADINE HYDROCHLORIDE
     Dosage: 180 MILLIGRAM DAILY;
     Route: 048
     Dates: start: 20191113, end: 20191113
  4. XARELTO [Concomitant]
     Active Substance: RIVAROXABAN
     Dates: start: 201806
  5. FEXOFENADINE 180 MG 571 (FEXOFENADINE) TABLET [Suspect]
     Active Substance: FEXOFENADINE HYDROCHLORIDE
     Indication: NASAL CONGESTION
     Dosage: 180 MILLIGRAM DAILY;
     Route: 048
     Dates: start: 20191112, end: 20191112

REACTIONS (8)
  - Ocular hyperaemia [Not Recovered/Not Resolved]
  - Eye inflammation [Not Recovered/Not Resolved]
  - Eye irritation [Recovered/Resolved]
  - Extra dose administered [Unknown]
  - Hypersensitivity [Not Recovered/Not Resolved]
  - Eyelids pruritus [Not Recovered/Not Resolved]
  - Product administered to patient of inappropriate age [Unknown]
  - Eye pruritus [Not Recovered/Not Resolved]

NARRATIVE: CASE EVENT DATE: 20191112
